FAERS Safety Report 22248294 (Version 3)
Quarter: 2023Q4

REPORT INFORMATION
  Report Type: Other
  Country: IN (occurrence: None)
  Receive Date: 20230425
  Receipt Date: 20231026
  Transmission Date: 20240110
  Serious: Yes (Other)
  Sender: FDA-Public Use
  Company Number: IN-ROCHE-3297092

PATIENT
  Age: 21 Year
  Sex: Male

DRUGS (1)
  1. HEMLIBRA [Suspect]
     Active Substance: EMICIZUMAB-KXWH
     Indication: Factor VIII deficiency
     Dosage: 15 DAYS
     Route: 058

REACTIONS (2)
  - Mental disorder [Recovered/Resolved]
  - Haemorrhage [Recovered/Resolved]
